FAERS Safety Report 22136889 (Version 5)
Quarter: 2023Q2

REPORT INFORMATION
  Report Type: Report from Study
  Country: US (occurrence: US)
  Receive Date: 20230324
  Receipt Date: 20230621
  Transmission Date: 20230722
  Serious: Yes (Other)
  Sender: FDA-Public Use
  Company Number: US-TAKEDA-US202003340

PATIENT
  Sex: Female

DRUGS (1)
  1. HUMAN IMMUNOGLOBULIN G [Suspect]
     Active Substance: HUMAN IMMUNOGLOBULIN G
     Indication: Primary immunodeficiency syndrome
     Dosage: UNK
     Route: 042

REACTIONS (18)
  - Retinal tear [Unknown]
  - Macular degeneration [Unknown]
  - Bursitis [Unknown]
  - Speech disorder [Unknown]
  - Pulmonary mass [Unknown]
  - Autonomic nervous system imbalance [Unknown]
  - Tooth abscess [Unknown]
  - Postural orthostatic tachycardia syndrome [Unknown]
  - Blood pressure abnormal [Unknown]
  - Heart rate abnormal [Unknown]
  - Dehydration [Unknown]
  - Viral infection [Unknown]
  - Complication associated with device [Unknown]
  - Infection [Unknown]
  - Connective tissue disorder [Unknown]
  - Arthropathy [Unknown]
  - Gastroenteritis [Recovering/Resolving]
  - Lymphadenopathy [Unknown]
